FAERS Safety Report 8299551-1 (Version None)
Quarter: 2012Q2

REPORT INFORMATION
  Report Type: 
  Country: None (occurrence: None)
  Receive Date: 20120419
  Receipt Date: 20120412
  Transmission Date: 20120825
  Serious: Yes (Hospitalization)
  Sender: FDA-Public Use
  Company Number: US-FRI-1000029774

PATIENT
  Age: 46 Year
  Sex: Female

DRUGS (15)
  1. NASONEX [Concomitant]
  2. XANAX [Suspect]
     Dates: end: 20120405
  3. ESTRACE [Concomitant]
     Indication: HORMONE REPLACEMENT THERAPY
  4. AMLODIPINE [Concomitant]
     Indication: HYPERTENSION
  5. SPIRIVA [Concomitant]
  6. METOPROLOL TARTRATE [Concomitant]
     Indication: BLOOD PRESSURE INCREASED
  7. LIDOCAINE [Concomitant]
     Indication: PAIN
  8. BENTYL [Concomitant]
  9. NORCO [Concomitant]
     Dosage: 10/325 MG
  10. DALIRESP [Suspect]
     Indication: CHRONIC OBSTRUCTIVE PULMONARY DISEASE
     Dosage: 500 MCG
     Dates: start: 20111101, end: 20120411
  11. NEXIUM [Concomitant]
  12. VENTOLIN HFA [Concomitant]
  13. SOMA [Suspect]
     Dates: end: 20120405
  14. OXYCONTIN [Suspect]
     Dates: end: 20120405
  15. PATANOL [Concomitant]

REACTIONS (12)
  - PANIC ATTACK [None]
  - DYSPNOEA [None]
  - PAIN [None]
  - DELUSION [None]
  - INSOMNIA [None]
  - VOMITING [None]
  - TREMOR [None]
  - PALPITATIONS [None]
  - ANXIETY [None]
  - NAUSEA [None]
  - DECREASED APPETITE [None]
  - ABDOMINAL PAIN [None]
